FAERS Safety Report 7083917-1 (Version None)
Quarter: 2010Q4

REPORT INFORMATION
  Report Type: 
  Country: None (occurrence: None)
  Receive Date: 20101104
  Receipt Date: 20101025
  Transmission Date: 20110411
  Serious: Yes (Hospitalization, Disabling)
  Sender: FDA-Public Use
  Company Number: US-JNJFOC-20090200298

PATIENT
  Sex: Male
  Weight: 68 kg

DRUGS (7)
  1. MOTRIN IB [Suspect]
     Indication: TOOTHACHE
  2. MOTRIN IB [Suspect]
  3. ACYCLOVIR SODIUM [Concomitant]
  4. TRIAMTERENE AND HYDROCHLOROTHIAZIDE [Concomitant]
     Indication: HYPERTENSION
     Dosage: 37.5/25
  5. UNSPECIFIED MOUTHWASH [Concomitant]
     Dosage: SWISH AND SPIT 1-2 TEASPOONS EVERY 4 HOURS
  6. OXYCODONE HCL AND ACETAMINOPHEN [Concomitant]
     Indication: PAIN
     Dosage: 5/325 1-2 EVERY 4 HOURS AS NEEDED
  7. LIDOCAINE HCL VISCOUS [Concomitant]
     Dosage: 2 TEASPOONS EVERY 2-3 HOURS

REACTIONS (4)
  - DRUG INEFFECTIVE [None]
  - ERYTHEMA MULTIFORME [None]
  - RENAL FAILURE ACUTE [None]
  - STEVENS-JOHNSON SYNDROME [None]
